FAERS Safety Report 5578033-1 (Version None)
Quarter: 2007Q4

REPORT INFORMATION
  Report Type: 
  Country: None (occurrence: None)
  Receive Date: 20071227
  Receipt Date: 20071214
  Transmission Date: 20080405
  Serious: Yes (Death, Life-Threatening, Hospitalization)
  Sender: FDA-Public Use
  Company Number: 2007-03924

PATIENT
  Age: 62 Year
  Sex: Male
  Weight: 76 kg

DRUGS (22)
  1. VELCADE [Suspect]
     Indication: MULTIPLE MYELOMA
     Dosage: 2/4 MG, INTRAVENOUS, 1.9 MG, INTRAVENOUS
     Route: 042
     Dates: start: 20071005, end: 20071008
  2. VELCADE [Suspect]
     Indication: MULTIPLE MYELOMA
     Dosage: 2/4 MG, INTRAVENOUS, 1.9 MG, INTRAVENOUS
     Route: 042
     Dates: start: 20071012, end: 20071015
  3. PRODIF(FOSFLUCONAZOLE) [Suspect]
     Indication: SEPSIS
     Dosage: INTRAVENOUS
     Route: 042
     Dates: start: 20071023, end: 20071026
  4. DEXAMETHASONE TAB [Concomitant]
  5. GRANISETRON  HCL [Concomitant]
  6. BETAMETHASONE BUTYRATE PROPIONATE (BETAMETHASONE BUTYRATE PROPIONATE) [Concomitant]
  7. EXACIN (ISEPAMICIN SULFATE) [Concomitant]
  8. CEFAMEZOL (CEFAZOLIN SODIUM) [Concomitant]
  9. ALBUMIN (HUMAN) [Concomitant]
  10. TARGOCID [Concomitant]
  11. DENOSINE (GANCICLOVIR) [Concomitant]
  12. FUNGUARD [Concomitant]
  13. CARBENIN (BETAMIPRON, PANIPENEM) [Concomitant]
  14. ELASPOL (SIVELESTAT) [Concomitant]
  15. FOY (GABEXATE MESILATE) [Concomitant]
  16. MIRACLID (ULINASTATIN) [Concomitant]
  17. AMIKACIN SULFATE [Concomitant]
  18. VANCOMYCIN HYDROCHLORIDE [Concomitant]
  19. ALLELOCK (OLOPATADINE HYDROCHLORIDE) [Concomitant]
  20. GABAPENTIN [Concomitant]
  21. METHYCOBAL (MECOBALAMIN) [Concomitant]
  22. DOPAMINE HYDROCHLORIDE [Concomitant]

REACTIONS (8)
  - ASPERGILLOSIS [None]
  - ENTERITIS INFECTIOUS [None]
  - HYPOALBUMINAEMIA [None]
  - ILEUS [None]
  - NEUROPATHY PERIPHERAL [None]
  - ORTHOSTATIC HYPOTENSION [None]
  - RASH [None]
  - SEPSIS [None]
